FAERS Safety Report 6975322-0 (Version None)
Quarter: 2010Q3

REPORT INFORMATION
  Report Type: 
  Country: None (occurrence: None)
  Receive Date: 20100910
  Receipt Date: 20090226
  Transmission Date: 20110219
  Serious: No
  Sender: FDA-Public Use
  Company Number: US-WYE-H08368809

PATIENT
  Age: 70 Year
  Sex: Male

DRUGS (1)
  1. ARTANE [Suspect]
     Dosage: UNKNOWN

REACTIONS (1)
  - CONFUSIONAL STATE [None]
